FAERS Safety Report 10430529 (Version 1)
Quarter: 2014Q3

REPORT INFORMATION
  Report Type: Spontaneous
  Country: US (occurrence: None)
  Receive Date: 20140903
  Receipt Date: 20140903
  Transmission Date: 20150326
  Serious: Yes (Other)
  Sender: FDA-Public Use
  Company Number: None

PATIENT
  Age: 38 Year
  Sex: Male
  Weight: 90.72 kg

DRUGS (1)
  1. CHANTIX [Suspect]
     Active Substance: VARENICLINE TARTRATE
     Indication: SMOKING CESSATION THERAPY
     Dosage: PER PACK DOSAGE, TAKEN BY MOUTH
     Route: 048
     Dates: start: 20130817, end: 20140901

REACTIONS (1)
  - Anger [None]

NARRATIVE: CASE EVENT DATE: 20130901
